FAERS Safety Report 11431821 (Version 2)
Quarter: 2015Q4

REPORT INFORMATION
  Report Type: Spontaneous
  Country: US (occurrence: US)
  Receive Date: 20150828
  Receipt Date: 20151030
  Transmission Date: 20160304
  Serious: No
  Sender: FDA-Public Use
  Company Number: US-009507513-1508USA011039

PATIENT
  Age: 58 Year
  Sex: Female

DRUGS (2)
  1. BELSOMRA [Suspect]
     Active Substance: SUVOREXANT
     Indication: SLEEP APNOEA SYNDROME
     Dosage: 20 MG, ONCE DAILY
     Route: 048
     Dates: start: 201508, end: 201508
  2. BELSOMRA [Suspect]
     Active Substance: SUVOREXANT
     Indication: INSOMNIA
     Dosage: 10 MG, ONCE DAILY
     Route: 048
     Dates: start: 20150820, end: 20150823

REACTIONS (2)
  - Drug ineffective for unapproved indication [Unknown]
  - Drug ineffective [Recovered/Resolved]

NARRATIVE: CASE EVENT DATE: 201508
